FAERS Safety Report 8243175-9 (Version None)
Quarter: 2012Q1

REPORT INFORMATION
  Report Type: 
  Country: None (occurrence: None)
  Receive Date: 20120329
  Receipt Date: 20120315
  Transmission Date: 20120608
  Serious: Yes (Other)
  Sender: FDA-Public Use
  Company Number: PT-MYLANLABS-2012S1005991

PATIENT
  Age: 72 Year
  Sex: Male

DRUGS (6)
  1. LENALIDOMIDE [Suspect]
     Indication: MULTIPLE MYELOMA
     Dosage: FOR 21D IN MONTHLY CYCLES
     Route: 065
     Dates: start: 20100701
  2. DEXAMETHASONE [Suspect]
     Indication: MULTIPLE MYELOMA
     Dosage: FOR 4D OF MONTHLY CYCLE
     Route: 065
     Dates: start: 20100701
  3. PREDNISOLONE [Suspect]
     Indication: MULTIPLE MYELOMA
     Dosage: 110MG ON DAYS 1-4 IN 6-W CYCLES
     Route: 065
  4. ASPIRIN [Concomitant]
     Indication: THROMBOSIS PROPHYLAXIS
     Route: 065
  5. BORTEZOMIB [Suspect]
     Indication: MULTIPLE MYELOMA
     Dosage: 2.4MG ON DAYS 1, 4, 8, 11, 22, 25, 29, 32 IN 6-W CYCLES
     Route: 065
  6. MELPHALAN HYDROCHLORIDE [Suspect]
     Indication: MULTIPLE MYELOMA
     Dosage: 16MG IN 6-W CYCLES
     Route: 065

REACTIONS (1)
  - PULMONARY EMBOLISM [None]
